FAERS Safety Report 24448256 (Version 2)
Quarter: 2024Q4

REPORT INFORMATION
  Report Type: Report from Study
  Country: US (occurrence: US)
  Receive Date: 20241017
  Receipt Date: 20241022
  Transmission Date: 20250115
  Serious: Yes (Other)
  Sender: UCB
  Company Number: US-UCBSA-2024052828

PATIENT
  Age: 19 Year
  Sex: Male
  Weight: 54 kg

DRUGS (2)
  1. FINTEPLA [Suspect]
     Active Substance: FENFLURAMINE
     Indication: Lennox-Gastaut syndrome
     Dosage: 6 MILLILITER, 2X/DAY (BID)
     Dates: start: 20230112
  2. FINTEPLA [Suspect]
     Active Substance: FENFLURAMINE
     Dosage: 26.4 MILLIGRAM, ONCE DAILY (QD)
     Dates: start: 2024

REACTIONS (2)
  - Mitral valve incompetence [Not Recovered/Not Resolved]
  - Echocardiogram abnormal [Not Recovered/Not Resolved]

NARRATIVE: CASE EVENT DATE: 20240929
